FAERS Safety Report 17584254 (Version 1)
Quarter: 2020Q1

REPORT INFORMATION
  Report Type: Spontaneous
  Country: US (occurrence: US)
  Receive Date: 20200326
  Receipt Date: 20200326
  Transmission Date: 20200409
  Serious: Yes (Other)
  Sender: FDA-Public Use
  Company Number: US-NOVOPROD-719302

PATIENT
  Sex: Female

DRUGS (1)
  1. TRESIBA [Suspect]
     Active Substance: INSULIN DEGLUDEC
     Indication: TYPE 2 DIABETES MELLITUS
     Dosage: DOSE 65 IU
     Route: 058

REACTIONS (4)
  - Feeling abnormal [Unknown]
  - Fine motor skill dysfunction [Unknown]
  - Overdose [Unknown]
  - Blood glucose decreased [Recovered/Resolved]
